FAERS Safety Report 11837648 (Version 2)
Quarter: 2015Q4

REPORT INFORMATION
  Report Type: Spontaneous
  Country: US (occurrence: US)
  Receive Date: 20151215
  Receipt Date: 20151222
  Transmission Date: 20160305
  Serious: Yes (Other)
  Sender: FDA-Public Use
  Company Number: US-JNJFOC-20151208754

PATIENT
  Sex: Male

DRUGS (3)
  1. HALDOL [Suspect]
     Active Substance: HALOPERIDOL
     Indication: PRODUCT USED FOR UNKNOWN INDICATION
     Dosage: TREATED WITH UNSPECIFIED DOSE OF 1.
     Route: 030
     Dates: start: 2015
  2. SEROQUEL [Concomitant]
     Active Substance: QUETIAPINE FUMARATE
     Indication: PRODUCT USED FOR UNKNOWN INDICATION
     Route: 065
  3. HALDOL [Suspect]
     Active Substance: HALOPERIDOL
     Indication: PRODUCT USED FOR UNKNOWN INDICATION
     Dosage: TREATED WITH UNSPECIFIED DOSE OF 10.
     Route: 030
     Dates: start: 2015, end: 2015

REACTIONS (11)
  - Tardive dyskinesia [Unknown]
  - Insomnia [Unknown]
  - Brain injury [Unknown]
  - Abnormal behaviour [Unknown]
  - Suicidal ideation [Unknown]
  - Reading disorder [Unknown]
  - Psychotic disorder [Unknown]
  - Anxiety [Unknown]
  - Aphasia [Recovered/Resolved]
  - Headache [Unknown]
  - Nightmare [Unknown]

NARRATIVE: CASE EVENT DATE: 2015
